FAERS Safety Report 5448633-8 (Version None)
Quarter: 2007Q3

REPORT INFORMATION
  Report Type: 
  Country: None (occurrence: None)
  Receive Date: 20070905
  Receipt Date: 20070905
  Transmission Date: 20080115
  Serious: Yes (Hospitalization)
  Sender: FDA-Public Use
  Company Number: None

PATIENT
  Age: 55 Year
  Sex: Male
  Weight: 92.9874 kg

DRUGS (6)
  1. VARENICLINE TARTRATE [Suspect]
     Indication: SMOKING CESSATION THERAPY
     Dosage: 0.5 MG BID ORAL; 1.0 MG QD ORAL
     Route: 048
     Dates: start: 20070708, end: 20070714
  2. VARENICLINE TARTRATE [Suspect]
     Indication: SMOKING CESSATION THERAPY
     Dosage: 0.5 MG BID ORAL; 1.0 MG QD ORAL
     Route: 048
     Dates: start: 20070715, end: 20070727
  3. VARENICLINE TARTRATE [Suspect]
  4. HYDROCHLOROTHIAZIDE [Concomitant]
  5. ASPIRIN [Concomitant]
  6. MICONAZOLE 2% TOPICAL CREAM [Concomitant]

REACTIONS (4)
  - ANGINA PECTORIS [None]
  - CYANOSIS [None]
  - DIZZINESS [None]
  - MUSCULAR WEAKNESS [None]
